FAERS Safety Report 8446547-2 (Version None)
Quarter: 2012Q2

REPORT INFORMATION
  Report Type: 
  Country: None (occurrence: None)
  Receive Date: 20120618
  Receipt Date: 20120611
  Transmission Date: 20120825
  Serious: Yes (Life-Threatening, Hospitalization, Other)
  Sender: FDA-Public Use
  Company Number: US-ELI_LILLY_AND_COMPANY-US201205002561

PATIENT
  Sex: Male
  Weight: 104.31 kg

DRUGS (13)
  1. METFORMIN [Concomitant]
     Indication: TYPE 2 DIABETES MELLITUS
     Dosage: 500 MG, EACH MORNING
     Route: 048
  2. ASPIRIN                                 /USA/ [Concomitant]
     Indication: CARDIAC DISORDER
     Dosage: 325 MG, QD
     Route: 048
  3. LEXAPRO [Concomitant]
     Indication: DEPRESSION
     Dosage: 10 MG, QD
     Route: 048
     Dates: start: 20070101
  4. BYDUREON [Suspect]
     Indication: TYPE 2 DIABETES MELLITUS
     Dosage: 2 MG, WEEKLY (1/W)
     Route: 058
     Dates: start: 20120331
  5. LIPITOR [Concomitant]
     Indication: BLOOD CHOLESTEROL INCREASED
     Dosage: 20 MG, QD
     Route: 048
  6. METFORMIN [Concomitant]
     Dosage: 1500 MG, EACH EVENING
     Route: 048
  7. XALATAN [Concomitant]
     Indication: GLAUCOMA
     Dosage: 1 DF, EACH EVENING
  8. CARVEDILOL [Concomitant]
     Indication: CARDIAC DISORDER
     Dosage: 12.5 MG, BID
     Route: 048
  9. DIOVAN [Concomitant]
     Indication: CARDIAC DISORDER
     Dosage: 40 MG, QD
     Route: 048
  10. OXYBUTYNIN [Concomitant]
     Indication: PROSTATIC DISORDER
     Dosage: 20 MG, QD
     Route: 048
     Dates: start: 20010101
  11. BYETTA [Suspect]
     Indication: TYPE 2 DIABETES MELLITUS
     Dosage: 10 UG, BID
     Route: 058
     Dates: start: 20050101, end: 20120301
  12. ZETIA [Concomitant]
     Indication: BLOOD CHOLESTEROL INCREASED
     Dosage: 10 MG, QD
     Route: 048
  13. PRILOSEC [Concomitant]
     Indication: GASTROOESOPHAGEAL REFLUX DISEASE
     Dosage: 20 MG, QD
     Route: 048

REACTIONS (10)
  - DEPRESSION [None]
  - BLOOD MAGNESIUM DECREASED [None]
  - DIZZINESS [None]
  - ATRIOVENTRICULAR BLOCK [None]
  - GAIT DISTURBANCE [None]
  - MUSCULAR WEAKNESS [None]
  - INJECTION SITE HAEMORRHAGE [None]
  - CARDIAC ARREST [None]
  - ATRIAL FIBRILLATION [None]
  - UNDERDOSE [None]
